FAERS Safety Report 9947113 (Version 1)
Quarter: 2014Q1

REPORT INFORMATION
  Report Type: Report from Study
  Country: US (occurrence: US)
  Receive Date: 20140303
  Receipt Date: 20140303
  Transmission Date: 20141002
  Serious: Yes (Other)
  Sender: FDA-Public Use
  Company Number: US-ABBVIE-13P-163-1064354-00

PATIENT
  Age: 26 Year
  Sex: Male

DRUGS (6)
  1. HUMIRA [Suspect]
     Indication: COLITIS ULCERATIVE
     Dates: start: 20130222, end: 20130222
  2. HUMIRA [Suspect]
     Dates: start: 20130309
  3. PREDNISONE [Suspect]
     Indication: COLITIS
     Dates: start: 201212
  4. URSODIOL [Concomitant]
     Indication: CHOLANGITIS SCLEROSING
  5. FOLIC ACID [Concomitant]
     Indication: PRODUCT USED FOR UNKNOWN INDICATION
  6. UNKNOWN MEDICATIONS [Concomitant]
     Indication: PRODUCT USED FOR UNKNOWN INDICATION

REACTIONS (6)
  - Pancreatitis [Unknown]
  - Pruritus [Unknown]
  - Gallbladder enlargement [Unknown]
  - Diarrhoea [Unknown]
  - Infection [Unknown]
  - Abdominal pain upper [Unknown]
